FAERS Safety Report 10052630 (Version 1)
Quarter: 2014Q1

REPORT INFORMATION
  Report Type: Spontaneous
  Country: US (occurrence: None)
  Receive Date: 20140331
  Receipt Date: 20140331
  Transmission Date: 20141002
  Serious: Yes (Hospitalization)
  Sender: FDA-Public Use
  Company Number: UTC-046214

PATIENT
  Age: 11 Year
  Sex: Female
  Weight: 38 kg

DRUGS (2)
  1. REMODULIN [Suspect]
     Indication: PULMONARY HYPERTENSION
     Route: 042
     Dates: start: 20140130
  2. FLOLAN [Suspect]
     Indication: PULMONARY ARTERIAL HYPERTENSION
     Dates: start: 20140130

REACTIONS (5)
  - Myocardial infarction [None]
  - Pulmonary hypertension [None]
  - Dizziness [None]
  - Headache [None]
  - Chest pain [None]
